FAERS Safety Report 23869238 (Version 3)
Quarter: 2024Q2

REPORT INFORMATION
  Report Type: Report from Study
  Country: US (occurrence: US)
  Receive Date: 20240517
  Receipt Date: 20240604
  Transmission Date: 20240716
  Serious: Yes (Hospitalization)
  Sender: FDA-Public Use
  Company Number: US-ABBVIE-5761966

PATIENT
  Age: 72 Year
  Sex: Male

DRUGS (3)
  1. DUOPA [Suspect]
     Active Substance: CARBIDOPA\LEVODOPA
     Indication: Parkinson^s disease
     Dosage: 4.63-20MG/100ML X 7?MORNING DOSE: 11ML, CONTINUOUS DOSE: 3.8ML/HR, EXTRA DOSE: 1.5ML?EVERY 1 HOUR...
     Route: 050
     Dates: start: 202203
  2. DUOPA [Suspect]
     Active Substance: CARBIDOPA\LEVODOPA
     Indication: Dyskinesia
     Route: 050
     Dates: start: 20220528
  3. DUOPA [Suspect]
     Active Substance: CARBIDOPA\LEVODOPA
     Indication: On and off phenomenon

REACTIONS (4)
  - Hospice care [Not Recovered/Not Resolved]
  - Fall [Recovering/Resolving]
  - Delusion [Not Recovered/Not Resolved]
  - Face injury [Recovering/Resolving]

NARRATIVE: CASE EVENT DATE: 20240101
